FAERS Safety Report 7026888-6 (Version None)
Quarter: 2010Q4

REPORT INFORMATION
  Report Type: 
  Country: None (occurrence: None)
  Receive Date: 20101004
  Receipt Date: 20100922
  Transmission Date: 20110411
  Serious: Yes (Hospitalization)
  Sender: FDA-Public Use
  Company Number: A0878676A

PATIENT
  Sex: Female

DRUGS (2)
  1. AVANDIA [Suspect]
     Dosage: 4MG PER DAY
     Route: 048
     Dates: start: 20000101, end: 20100601
  2. CONCURRENT MEDICATIONS [Concomitant]

REACTIONS (8)
  - ABASIA [None]
  - BLOOD GLUCOSE DECREASED [None]
  - CARDIAC FAILURE CONGESTIVE [None]
  - FATIGUE [None]
  - HYPERTENSION [None]
  - LUNG DISORDER [None]
  - SWELLING [None]
  - WEIGHT INCREASED [None]
